FAERS Safety Report 9126402 (Version 1)
Quarter: 2013Q1

REPORT INFORMATION
  Report Type: Spontaneous
  Country: FR (occurrence: FR)
  Receive Date: 20130117
  Receipt Date: 20130117
  Transmission Date: 20140127
  Serious: Yes (Hospitalization)
  Sender: FDA-Public Use
  Company Number: FR-GLAXOSMITHKLINE-B0857467A

PATIENT
  Age: 65 Year
  Sex: Female

DRUGS (5)
  1. LAMICTAL [Suspect]
     Indication: EPILEPSY
     Route: 048
     Dates: start: 20121017, end: 20121125
  2. KEPPRA [Suspect]
     Indication: EPILEPSY
     Route: 048
     Dates: start: 20121017, end: 20121125
  3. ALEPSAL [Concomitant]
  4. CHONDROSULF [Concomitant]
  5. PHYTOTHERAPY [Concomitant]

REACTIONS (7)
  - Erythema multiforme [Recovered/Resolved]
  - Mucosal erosion [Recovered/Resolved]
  - Oral discomfort [Recovered/Resolved]
  - Lymphadenopathy [Recovered/Resolved]
  - Rash [Recovered/Resolved]
  - Genital discomfort [Recovered/Resolved]
  - Skin lesion [Recovered/Resolved]
